FAERS Safety Report 5894695-3 (Version None)
Quarter: 2008Q3

REPORT INFORMATION
  Report Type: 
  Country: None (occurrence: None)
  Receive Date: 20080924
  Receipt Date: 20080502
  Transmission Date: 20090109
  Serious: No
  Sender: FDA-Public Use
  Company Number: US-ASTRAZENECA-2008UW09335

PATIENT
  Age: 18 Year

DRUGS (1)
  1. SEROQUEL [Suspect]
     Dosage: 600-800 MG
     Route: 048

REACTIONS (2)
  - DYSPNOEA [None]
  - TONGUE DISORDER [None]
